FAERS Safety Report 19762239 (Version 1)
Quarter: 2021Q3

REPORT INFORMATION
  Report Type: Spontaneous
  Country: US (occurrence: US)
  Receive Date: 20210827
  Receipt Date: 20210827
  Transmission Date: 20211014
  Serious: No
  Sender: FDA-Public Use
  Company Number: None

PATIENT
  Age: 89 Year
  Sex: Male
  Weight: 164 kg

DRUGS (1)
  1. REMDESIVIR (REMDESIVIR 100MG/VIAL INJ) [Suspect]
     Active Substance: REMDESIVIR
     Indication: COVID-19
     Dates: start: 20201220, end: 20201224

REACTIONS (1)
  - Hepatic enzyme abnormal [None]

NARRATIVE: CASE EVENT DATE: 20201224
